FAERS Safety Report 8922356 (Version 2)
Quarter: 2013Q1

REPORT INFORMATION
  Report Type: Spontaneous
  Country: JP (occurrence: JP)
  Receive Date: 20121123
  Receipt Date: 20130102
  Transmission Date: 20140127
  Serious: Yes (Other)
  Sender: FDA-Public Use
  Company Number: JP-JNJFOC-20121105019

PATIENT
  Age: 82 Year
  Sex: Female
  Weight: 40 kg

DRUGS (9)
  1. REMINYL [Suspect]
     Indication: DEMENTIA
     Route: 048
     Dates: start: 20120927
  2. REMINYL [Suspect]
     Indication: DEMENTIA
     Route: 048
     Dates: start: 20121025
  3. DOPACOL [Concomitant]
     Indication: PARKINSONISM
     Route: 048
     Dates: start: 20120531
  4. YOKUKAN-SAN [Concomitant]
     Indication: DEMENTIA
     Route: 048
     Dates: start: 20120531
  5. DROXIDOPA [Concomitant]
     Indication: PARKINSONISM
     Route: 048
     Dates: start: 20120712
  6. AMANTADINE HYDROCHLORIDE [Concomitant]
     Indication: PARKINSONISM
     Route: 048
     Dates: start: 20120809
  7. BEZAFIBRATE [Concomitant]
     Indication: HYPERLIPIDAEMIA
     Route: 048
  8. AMLODIPINE [Concomitant]
     Indication: HYPERTENSION
     Route: 048
  9. MEMANTINE HYDROCHLORIDE [Concomitant]
     Indication: DEMENTIA
     Route: 048
     Dates: start: 20120709

REACTIONS (1)
  - Dysuria [Recovered/Resolved]
